FAERS Safety Report 6273900-8 (Version None)
Quarter: 2009Q3

REPORT INFORMATION
  Report Type: 
  Country: None (occurrence: None)
  Receive Date: 20090715
  Receipt Date: 20090706
  Transmission Date: 20100115
  Serious: Yes (Other)
  Sender: FDA-Public Use
  Company Number: TUK2009A00116

PATIENT
  Age: 67 Year
  Sex: Female

DRUGS (16)
  1. ACTOS [Suspect]
     Indication: DIABETES MELLITUS
     Dosage: 45 MG (30 MG) ORAL ; 45 MG (30 MG) ORAL ; 30 MG (30 MG) ORAL
     Route: 048
     Dates: start: 20090226, end: 20090318
  2. ACTOS [Suspect]
     Indication: DIABETES MELLITUS
     Dosage: 45 MG (30 MG) ORAL ; 45 MG (30 MG) ORAL ; 30 MG (30 MG) ORAL
     Route: 048
     Dates: start: 20090518, end: 20090604
  3. ACTOS [Suspect]
     Indication: DIABETES MELLITUS
     Dosage: 45 MG (30 MG) ORAL ; 45 MG (30 MG) ORAL ; 30 MG (30 MG) ORAL
     Route: 048
     Dates: start: 20090319
  4. AMLODIPINE (AMLODIPINE) [Concomitant]
  5. AMITRIPTYLINE HYDROCHLORIDE [Concomitant]
  6. ASPIRIN [Concomitant]
  7. BECLOMETHASONE DIPROPIONATE [Concomitant]
  8. CARVEDILOL [Concomitant]
  9. DIGOXIN [Concomitant]
  10. ENALAPRIL MALEATE [Concomitant]
  11. FUROSEMIDE [Concomitant]
  12. LEVEMIR [Concomitant]
  13. NOVOLOG [Concomitant]
  14. REMEDEINE (PARACETAMOL, DIHYDROCODEINE) [Concomitant]
  15. SALBUTAMOL (SALBUTAMOL) [Concomitant]
  16. SPIRONOLACTONE [Concomitant]

REACTIONS (5)
  - ANAEMIA [None]
  - CARDIAC FAILURE [None]
  - DIZZINESS [None]
  - DYSPNOEA [None]
  - PLEURAL EFFUSION [None]
